FAERS Safety Report 6692726-4 (Version None)
Quarter: 2010Q2

REPORT INFORMATION
  Report Type: 
  Country: None (occurrence: None)
  Receive Date: 20100419
  Receipt Date: 20100406
  Transmission Date: 20101027
  Serious: Yes (Hospitalization)
  Sender: FDA-Public Use
  Company Number: 2010AL002027

PATIENT
  Age: 43 Year
  Sex: Female

DRUGS (1)
  1. METFORMIN HYDROCHLORIDE [Suspect]
     Indication: TYPE 2 DIABETES MELLITUS
     Dosage: 500 MG; BID;

REACTIONS (20)
  - ALTERED STATE OF CONSCIOUSNESS [None]
  - BLOOD CHLORIDE DECREASED [None]
  - BLOOD PRESSURE DECREASED [None]
  - BLOOD SODIUM DECREASED [None]
  - BODY TEMPERATURE DECREASED [None]
  - COMA SCALE ABNORMAL [None]
  - CONTINUOUS HAEMODIAFILTRATION [None]
  - DECREASED APPETITE [None]
  - DEPRESSED MOOD [None]
  - DIABETIC NEPHROPATHY [None]
  - HEART RATE INCREASED [None]
  - HYPERKALAEMIA [None]
  - HYPOGLYCAEMIA [None]
  - LACTIC ACIDOSIS [None]
  - LETHARGY [None]
  - METABOLIC ACIDOSIS [None]
  - OLIGURIA [None]
  - OVERDOSE [None]
  - RESPIRATORY DISORDER [None]
  - SUICIDE ATTEMPT [None]
